FAERS Safety Report 17244137 (Version 1)
Quarter: 2020Q1

REPORT INFORMATION
  Report Type: Spontaneous
  Country: US (occurrence: US)
  Receive Date: 20200107
  Receipt Date: 20200107
  Transmission Date: 20200409
  Serious: No
  Sender: FDA-Public Use
  Company Number: US-GALDERMA-US19028801

PATIENT
  Age: 38 Year
  Sex: Female

DRUGS (6)
  1. AZATHIOPRINE. [Concomitant]
     Active Substance: AZATHIOPRINE
     Indication: METASTATIC CUTANEOUS CROHN^S DISEASE
     Route: 065
  2. METRONIDAZOLE (METRONIDAZOLE) [Suspect]
     Active Substance: METRONIDAZOLE
     Indication: METASTATIC CUTANEOUS CROHN^S DISEASE
     Dosage: 0.75%
     Route: 061
  3. ADALIMUMAB [Concomitant]
     Active Substance: ADALIMUMAB
     Indication: CROHN^S DISEASE
  4. CIPROFLOXACIN. [Concomitant]
     Active Substance: CIPROFLOXACIN
     Indication: METASTATIC CUTANEOUS CROHN^S DISEASE
     Route: 065
  5. ADALIMUMAB [Concomitant]
     Active Substance: ADALIMUMAB
     Indication: METASTATIC CUTANEOUS CROHN^S DISEASE
     Route: 065
  6. MESALAMINE. [Concomitant]
     Active Substance: MESALAMINE
     Indication: METASTATIC CUTANEOUS CROHN^S DISEASE
     Route: 065

REACTIONS (2)
  - Drug ineffective for unapproved indication [Recovered/Resolved]
  - Intentional product use issue [Recovered/Resolved]
